FAERS Safety Report 15946792 (Version 1)
Quarter: 2019Q1

REPORT INFORMATION
  Report Type: Spontaneous
  Country: GB (occurrence: GB)
  Receive Date: 20190211
  Receipt Date: 20190211
  Transmission Date: 20190417
  Serious: Yes (Hospitalization, Disabling, Other)
  Sender: FDA-Public Use
  Company Number: GB-MYLANLABS-2019M1011522

PATIENT
  Age: 43 Year
  Sex: Female

DRUGS (1)
  1. QUININE [Suspect]
     Active Substance: QUININE
     Indication: MUSCLE SPASMS
     Dosage: 7.5 GRAM (25X300 MG TABLETS)
     Route: 048

REACTIONS (11)
  - Toxicity to various agents [Recovering/Resolving]
  - Pupil fixed [Recovering/Resolving]
  - Hyperhidrosis [Recovering/Resolving]
  - Drug abuse [Unknown]
  - Amblyopia [Recovering/Resolving]
  - Overdose [Unknown]
  - Blindness [Recovering/Resolving]
  - Tinnitus [Recovering/Resolving]
  - Retinal pallor [Unknown]
  - Somnolence [Recovering/Resolving]
  - Flushing [Recovering/Resolving]
